FAERS Safety Report 6612624-1 (Version None)
Quarter: 2010Q1

REPORT INFORMATION
  Report Type: 
  Country: None (occurrence: None)
  Receive Date: 20100223
  Receipt Date: 20100209
  Transmission Date: 20100710
  Serious: No
  Sender: FDA-Public Use
  Company Number: 2010AP000182

PATIENT

DRUGS (3)
  1. LAMOTRIGINE [Suspect]
     Dosage: 50 MG;QD
  2. VALPROIC ACID [Suspect]
     Dosage: 2000 MG
  3. FOLIC ACID [Suspect]
     Dosage: 0.4 MG;QD

REACTIONS (2)
  - MATERNAL DRUGS AFFECTING FOETUS [None]
  - VENTRICULAR SEPTAL DEFECT [None]
